FAERS Safety Report 20994267 (Version 2)
Quarter: 2022Q3

REPORT INFORMATION
  Report Type: Spontaneous
  Country: JP (occurrence: JP)
  Receive Date: 20220622
  Receipt Date: 20220727
  Transmission Date: 20221026
  Serious: No
  Sender: FDA-Public Use
  Company Number: JP-DSJP-DSJ-2022-121550

PATIENT
  Age: 57 Year
  Sex: Male

DRUGS (2)
  1. ENHERTU [Suspect]
     Active Substance: FAM-TRASTUZUMAB DERUXTECAN-NXKI
     Indication: Gastric cancer
     Dosage: 6.4 MG/KG
     Route: 065
     Dates: start: 20220118
  2. ENHERTU [Suspect]
     Active Substance: FAM-TRASTUZUMAB DERUXTECAN-NXKI
     Dosage: 6.4 MG/KG
     Route: 065

REACTIONS (1)
  - Neutrophil count decreased [Recovered/Resolved]
